FAERS Safety Report 24870148 (Version 1)
Quarter: 2025Q1

REPORT INFORMATION
  Report Type: Spontaneous
  Country: US (occurrence: US)
  Receive Date: 20250121
  Receipt Date: 20250121
  Transmission Date: 20250409
  Serious: No
  Sender: SANOFI AVENTIS
  Company Number: US-SA-2025SA017778

PATIENT
  Age: 5 Year
  Sex: Female
  Weight: 23.64 kg

DRUGS (5)
  1. DUPIXENT [Suspect]
     Active Substance: DUPILUMAB
     Indication: Dermatitis atopic
     Dosage: 300 MG, Q4W
     Route: 058
     Dates: start: 202408
  2. COSMETICS [Concomitant]
     Active Substance: COSMETICS
  3. FLUTICASONE PROPIONATE [Concomitant]
     Active Substance: FLUTICASONE PROPIONATE
  4. MUPIROCIN [Concomitant]
     Active Substance: MUPIROCIN
  5. TACROLIMUS [Concomitant]
     Active Substance: TACROLIMUS

REACTIONS (3)
  - Ocular hyperaemia [Not Recovered/Not Resolved]
  - Eczema [Not Recovered/Not Resolved]
  - Drug effect less than expected [Not Recovered/Not Resolved]
